FAERS Safety Report 10462664 (Version 3)
Quarter: 2014Q4

REPORT INFORMATION
  Report Type: Spontaneous
  Country: CN (occurrence: CN)
  Receive Date: 20140918
  Receipt Date: 20141001
  Transmission Date: 20150528
  Serious: Yes (Other)
  Sender: FDA-Public Use
  Company Number: CN-JNJFOC-20140906718

PATIENT
  Age: 21 Year
  Sex: Male

DRUGS (1)
  1. INVEGA SUSTENNA [Suspect]
     Active Substance: PALIPERIDONE PALMITATE
     Indication: SCHIZOPHRENIA
     Route: 030
     Dates: end: 20140603

REACTIONS (4)
  - Injection site reaction [Recovering/Resolving]
  - Injection site infection [Recovering/Resolving]
  - Injection site ulcer [Recovering/Resolving]
  - Injection site injury [Recovering/Resolving]

NARRATIVE: CASE EVENT DATE: 20140610
